FAERS Safety Report 4920953-2 (Version None)
Quarter: 2006Q1

REPORT INFORMATION
  Report Type: 
  Country: None (occurrence: None)
  Receive Date: 20060223
  Receipt Date: 20051021
  Transmission Date: 20060701
  Serious: Yes (Death, Hospitalization, Other)
  Sender: FDA-Public Use
  Company Number: US-MERCK-0510USA08792

PATIENT
  Age: 64 Year
  Sex: Female
  Weight: 55 kg

DRUGS (17)
  1. METOPROLOL [Concomitant]
     Route: 065
  2. VIOXX [Suspect]
     Indication: ARTHRITIS
     Route: 048
     Dates: start: 20010629, end: 20040417
  3. ASPIRIN [Concomitant]
     Route: 065
  4. CELEBREX [Concomitant]
     Route: 065
  5. METFORMIN [Concomitant]
     Route: 065
  6. PREMARIN [Concomitant]
     Route: 065
  7. ZESTORETIC [Concomitant]
     Route: 048
  8. PREVACID [Concomitant]
     Route: 065
  9. NAPROXEN [Concomitant]
     Route: 065
  10. NOVOLIN [Concomitant]
     Indication: DIABETES MELLITUS
     Route: 065
  11. ZETIA [Concomitant]
     Route: 048
  12. NORVASC [Concomitant]
     Route: 065
  13. NITROGEN [Concomitant]
     Route: 065
  14. FUROSEMIDE [Concomitant]
     Route: 065
  15. CARDIZEM [Concomitant]
     Route: 065
  16. DILTIAZEM HYDROCHLORIDE [Concomitant]
     Route: 065
  17. LORAZEPAM [Concomitant]
     Route: 065

REACTIONS (4)
  - ADVERSE EVENT [None]
  - CEREBROVASCULAR ACCIDENT [None]
  - GASTRIC DISORDER [None]
  - MYOCARDIAL INFARCTION [None]
